FAERS Safety Report 9565391 (Version 4)
Quarter: 2014Q1

REPORT INFORMATION
  Report Type: Spontaneous
  Country: US (occurrence: US)
  Receive Date: 20130930
  Receipt Date: 20140320
  Transmission Date: 20141002
  Serious: Yes (Other)
  Sender: FDA-Public Use
  Company Number: US-ELI_LILLY_AND_COMPANY-US201309007714

PATIENT
  Sex: Female

DRUGS (2)
  1. CYMBALTA [Suspect]
     Indication: NEUROPATHY PERIPHERAL
     Dosage: 30 MG, QD
     Route: 065
     Dates: start: 20130114, end: 20130128
  2. CYMBALTA [Suspect]
     Dosage: 30 MG, QD
     Route: 065
     Dates: start: 20130902, end: 20130913

REACTIONS (8)
  - Dyspnoea [Unknown]
  - Local swelling [Unknown]
  - Somnolence [Unknown]
  - Swollen tongue [Unknown]
  - International normalised ratio increased [Unknown]
  - Back pain [Unknown]
  - Drug ineffective [Unknown]
  - Off label use [Recovered/Resolved]
